FAERS Safety Report 20000604 (Version 1)
Quarter: 2021Q4

REPORT INFORMATION
  Report Type: Spontaneous
  Country: US (occurrence: US)
  Receive Date: 20211026
  Receipt Date: 20211026
  Transmission Date: 20220303
  Serious: Yes (Hospitalization, Other)
  Sender: FDA-Public Use
  Company Number: None

PATIENT
  Age: 74 Year
  Sex: Female
  Weight: 98.1 kg

DRUGS (4)
  1. REGEN-COV [Suspect]
     Active Substance: CASIRIVIMAB\IMDEVIMAB
     Indication: COVID-19
     Dosage: ?          OTHER FREQUENCY:ONCE;
     Route: 041
     Dates: start: 20211020, end: 20211020
  2. ROPINIROLE [Concomitant]
     Active Substance: ROPINIROLE
     Dates: start: 20131119
  3. CHOLECALCIFEROL [Concomitant]
     Active Substance: CHOLECALCIFEROL
     Dates: start: 20140619
  4. ZOLPIDEM [Concomitant]
     Active Substance: ZOLPIDEM TARTRATE
     Dates: start: 20160204

REACTIONS (19)
  - Cough [None]
  - Dyspnoea [None]
  - Decreased appetite [None]
  - Dyspnoea exertional [None]
  - Pyrexia [None]
  - Hypotension [None]
  - Heart rate increased [None]
  - Hypoxia [None]
  - Fatigue [None]
  - COVID-19 pneumonia [None]
  - Sinus tachycardia [None]
  - Electrocardiogram low voltage [None]
  - Arterial thrombosis [None]
  - Pneumonia viral [None]
  - Emphysema [None]
  - Procalcitonin increased [None]
  - Transaminases increased [None]
  - Acute kidney injury [None]
  - Thrombocytopenia [None]

NARRATIVE: CASE EVENT DATE: 20211020
